FAERS Safety Report 10952920 (Version 1)
Quarter: 2015Q1

REPORT INFORMATION
  Report Type: Spontaneous
  Country: US (occurrence: None)
  Receive Date: 20150324
  Receipt Date: 20150324
  Transmission Date: 20150721
  Serious: No
  Sender: FDA-Public Use
  Company Number: None

PATIENT
  Age: 78 Year
  Sex: Female

DRUGS (10)
  1. METOPROLOL [Concomitant]
     Active Substance: METOPROLOL
  2. CELEBREX [Concomitant]
     Active Substance: CELECOXIB
  3. Q-10 MEGA 3 [Concomitant]
  4. LUTEIN [Concomitant]
     Active Substance: LUTEIN
  5. MAGNESIUM [Concomitant]
     Active Substance: MAGNESIUM
  6. VIT. D [Concomitant]
  7. NIFEDICAL XL [Suspect]
     Active Substance: NIFEDIPINE
     Route: 048
  8. SIMVASTIN [Concomitant]
     Active Substance: SIMVASTATIN
  9. VASOTEC [Concomitant]
     Active Substance: ENALAPRIL MALEATE
  10. PROBIOTICS [Concomitant]
     Active Substance: PROBIOTICS NOS

REACTIONS (7)
  - Chest pain [None]
  - Drug intolerance [None]
  - Dizziness [None]
  - Product formulation issue [None]
  - Tremor [None]
  - Product substitution issue [None]
  - Malaise [None]

NARRATIVE: CASE EVENT DATE: 201502
